FAERS Safety Report 18819183 (Version 1)
Quarter: 2021Q1

REPORT INFORMATION
  Report Type: Spontaneous
  Country: SE (occurrence: SE)
  Receive Date: 20210201
  Receipt Date: 20210201
  Transmission Date: 20210419
  Serious: Yes (Hospitalization)
  Sender: FDA-Public Use
  Company Number: SE-MYLANLABS-2021M1005742

PATIENT
  Sex: Male

DRUGS (7)
  1. TROMBYL [Concomitant]
     Active Substance: ASPIRIN
     Dosage: UNK
     Dates: start: 20200820
  2. LEVAXIN [Concomitant]
     Active Substance: LEVOTHYROXINE SODIUM
     Dosage: UNK
     Route: 064
     Dates: start: 20191014
  3. TRANDATE [Concomitant]
     Active Substance: LABETALOL HYDROCHLORIDE
     Dosage: UNK
     Route: 064
     Dates: start: 20200720
  4. ONDANSETRON [Concomitant]
     Active Substance: ONDANSETRON
     Dosage: UNK
     Route: 064
     Dates: start: 20200717
  5. OMEPRAZOLE. [Concomitant]
     Active Substance: OMEPRAZOLE
     Dosage: UNK
     Route: 064
     Dates: start: 20200925
  6. XANOR [Concomitant]
     Active Substance: ALPRAZOLAM
     Dosage: UNK
     Route: 064
     Dates: start: 20201127
  7. VENLAFAXINE [Suspect]
     Active Substance: VENLAFAXINE HYDROCHLORIDE
     Indication: PRODUCT USED FOR UNKNOWN INDICATION
     Dosage: 300 MILLIGRAM THROUGHOUT PREGNANCY
     Route: 064

REACTIONS (2)
  - Foetal exposure during pregnancy [Recovered/Resolved]
  - Newborn persistent pulmonary hypertension [Recovered/Resolved]

NARRATIVE: CASE EVENT DATE: 202012
